APPROVED DRUG PRODUCT: PENICILLIN G POTASSIUM
Active Ingredient: PENICILLIN G POTASSIUM
Strength: 250,000 UNITS/5ML
Dosage Form/Route: FOR SOLUTION;ORAL
Application: A061740 | Product #001
Applicant: PUREPAC PHARMACEUTICAL CO
Approved: Approved Prior to Jan 1, 1982 | RLD: No | RS: No | Type: DISCN